FAERS Safety Report 16390072 (Version 2)
Quarter: 2019Q3

REPORT INFORMATION
  Report Type: Spontaneous
  Country: JP (occurrence: JP)
  Receive Date: 20190604
  Receipt Date: 20190730
  Transmission Date: 20191004
  Serious: Yes (Other)
  Sender: FDA-Public Use
  Company Number: PHJP2019JP006081

PATIENT

DRUGS (1)
  1. OCTREOTIDE. [Suspect]
     Active Substance: OCTREOTIDE
     Indication: GROWTH HORMONE-PRODUCING PITUITARY TUMOUR
     Dosage: 50 UG, UNK
     Route: 058

REACTIONS (1)
  - Hypoglycaemia [Unknown]
